FAERS Safety Report 12831283 (Version 1)
Quarter: 2016Q4

REPORT INFORMATION
  Report Type: Report from Study
  Country: None (occurrence: FR)
  Receive Date: 20161008
  Receipt Date: 20161008
  Transmission Date: 20170207
  Serious: Yes (Hospitalization)
  Sender: FDA-Public Use
  Company Number: FR-ABBVIE-16P-056-1744245-00

PATIENT
  Age: 55 Year
  Sex: Female
  Weight: 75 kg

DRUGS (5)
  1. EXVIERA [Suspect]
     Active Substance: DASABUVIR
     Indication: HEPATITIS C
     Route: 048
     Dates: start: 20151102, end: 20160125
  2. METHADONE [Concomitant]
     Active Substance: METHADONE HYDROCHLORIDE
     Indication: DRUG DEPENDENCE
     Dates: start: 2000
  3. VIEKIRAX [Suspect]
     Active Substance: OMBITASVIR\PARITAPREVIR\RITONAVIR
     Indication: HEPATITIS C
     Dosage: 25 MG/100 MG/150 MG
     Route: 048
     Dates: start: 20151102, end: 20160125
  4. ADCIRCA [Concomitant]
     Active Substance: TADALAFIL
     Indication: PULMONARY ARTERIAL HYPERTENSION
     Dates: start: 20160418
  5. LUMIGAN [Concomitant]
     Active Substance: BIMATOPROST
     Indication: OCULAR HYPERTENSION
     Dates: start: 2013

REACTIONS (1)
  - Pulmonary arterial hypertension [Unknown]

NARRATIVE: CASE EVENT DATE: 20151216
